FAERS Safety Report 24774932 (Version 9)
Quarter: 2025Q2

REPORT INFORMATION
  Report Type: Spontaneous
  Country: CA (occurrence: CA)
  Receive Date: 20241226
  Receipt Date: 20250516
  Transmission Date: 20250717
  Serious: Yes (Other)
  Sender: CELLTRION
  Company Number: CA-PFIZER INC-202400318988

PATIENT

DRUGS (6)
  1. INFLECTRA [Suspect]
     Active Substance: INFLIXIMAB-DYYB
     Indication: Colitis ulcerative
     Route: 042
     Dates: start: 20241204, end: 20241204
  2. INFLECTRA [Suspect]
     Active Substance: INFLIXIMAB-DYYB
     Route: 042
     Dates: start: 20241204, end: 20241204
  3. INFLECTRA [Suspect]
     Active Substance: INFLIXIMAB-DYYB
     Route: 042
     Dates: start: 20241204, end: 20241204
  4. INFLECTRA [Suspect]
     Active Substance: INFLIXIMAB-DYYB
     Route: 042
     Dates: start: 20241220
  5. INFLECTRA [Suspect]
     Active Substance: INFLIXIMAB-DYYB
     Route: 042
     Dates: start: 20250117, end: 20250117
  6. INFLECTRA [Suspect]
     Active Substance: INFLIXIMAB-DYYB
     Route: 042
     Dates: start: 20250508

REACTIONS (22)
  - Syncope [Recovering/Resolving]
  - Dizziness [Recovering/Resolving]
  - Fatigue [Recovering/Resolving]
  - Condition aggravated [Recovering/Resolving]
  - Dyspnoea [Recovering/Resolving]
  - Pruritus [Recovering/Resolving]
  - Paraesthesia oral [Recovering/Resolving]
  - Hypersensitivity [Recovering/Resolving]
  - Oxygen saturation decreased [Recovering/Resolving]
  - Mobility decreased [Recovering/Resolving]
  - Somnolence [Recovering/Resolving]
  - Chest pain [Recovering/Resolving]
  - Chest discomfort [Recovering/Resolving]
  - Hypotension [Recovering/Resolving]
  - Eye swelling [Recovering/Resolving]
  - Anaemia [Unknown]
  - Furuncle [Recovering/Resolving]
  - Molluscum contagiosum [Recovering/Resolving]
  - Folliculitis [Recovering/Resolving]
  - Infection reactivation [Recovering/Resolving]
  - Headache [Recovered/Resolved]
  - Balance disorder [Recovered/Resolved]

NARRATIVE: CASE EVENT DATE: 20240101
